FAERS Safety Report 18298856 (Version 3)
Quarter: 2020Q4

REPORT INFORMATION
  Report Type: Spontaneous
  Country: US (occurrence: US)
  Receive Date: 20200922
  Receipt Date: 20201029
  Transmission Date: 20210113
  Serious: Yes (Other)
  Sender: FDA-Public Use
  Company Number: NVSC2020US252849

PATIENT
  Age: 35 Year
  Sex: Female
  Weight: 59.09 kg

DRUGS (2)
  1. MAYZENT [Suspect]
     Active Substance: SIPONIMOD
     Indication: MULTIPLE SCLEROSIS
     Dosage: 2 MG, QD
     Route: 048
     Dates: start: 20200730, end: 20200911
  2. MAYZENT [Suspect]
     Active Substance: SIPONIMOD
     Dosage: 2 MG, QD
     Route: 048
     Dates: start: 20200924, end: 20200924

REACTIONS (9)
  - Pain [Not Recovered/Not Resolved]
  - Burning sensation [Recovering/Resolving]
  - Asthenia [Recovering/Resolving]
  - Pain in extremity [Recovering/Resolving]
  - Balance disorder [Not Recovered/Not Resolved]
  - Paraesthesia [Recovering/Resolving]
  - Multiple sclerosis [Not Recovered/Not Resolved]
  - Adverse drug reaction [Recovering/Resolving]
  - Ataxia [Recovering/Resolving]

NARRATIVE: CASE EVENT DATE: 20200730
